FAERS Safety Report 4421482-5 (Version None)
Quarter: 2004Q3

REPORT INFORMATION
  Report Type: 
  Country: None (occurrence: None)
  Receive Date: 20040712
  Receipt Date: 20040428
  Transmission Date: 20050211
  Serious: No
  Sender: FDA-Public Use
  Company Number: 2004-04-2049

PATIENT
  Age: 31 Year
  Sex: Female

DRUGS (7)
  1. CLARINEX [Suspect]
     Indication: HYPERSENSITIVITY
     Dosage: 5 MG ORAL
     Route: 048
     Dates: start: 20040319
  2. AMITRIPTYLINE HCL [Concomitant]
  3. ATENOLOL [Concomitant]
  4. ALBUTEROL [Concomitant]
  5. FORADIL [Concomitant]
  6. RELAFEN [Concomitant]
  7. ALESSE 28 (ETHINYL ESTRADIOL/ LEVONORGESTREL) [Concomitant]

REACTIONS (2)
  - ASTHMA [None]
  - HYPERSENSITIVITY [None]
